FAERS Safety Report 9483053 (Version 1)
Quarter: 2013Q3

REPORT INFORMATION
  Report Type: Spontaneous
  Country: US (occurrence: US)
  Receive Date: 20130828
  Receipt Date: 20130828
  Transmission Date: 20140515
  Serious: Yes (Hospitalization)
  Sender: FDA-Public Use
  Company Number: US-AMGEN-US077768

PATIENT
  Age: 7 Year
  Sex: Female

DRUGS (1)
  1. ENBREL [Suspect]
     Indication: JUVENILE IDIOPATHIC ARTHRITIS
     Dosage: 7.5 MG, 2 TIMES/WK
     Route: 058
     Dates: start: 20030313

REACTIONS (3)
  - Pseudomonas infection [Unknown]
  - Staphylococcal infection [Unknown]
  - Ear infection [Unknown]
